FAERS Safety Report 8868521 (Version 1)
Quarter: 2012Q4

REPORT INFORMATION
  Report Type: 
  Country: US (occurrence: US)
  Receive Date: 20121025
  Receipt Date: 20121025
  Transmission Date: 20130627
  Serious: No
  Sender: FDA-Public Use
  Company Number: US-AMGEN-USASP2012019891

PATIENT
  Age: 31 Year
  Sex: Male

DRUGS (2)
  1. ENBREL [Suspect]
     Indication: PSORIASIS
     Dosage: 50 mg, 2 times/wk
     Dates: start: 2010, end: 201106
  2. ENBREL [Suspect]
     Dosage: 50 mg, 2 times/wk
     Dates: start: 20120324

REACTIONS (2)
  - Oedema peripheral [Not Recovered/Not Resolved]
  - Psoriasis [Not Recovered/Not Resolved]
